FAERS Safety Report 24712946 (Version 1)
Quarter: 2024Q4

REPORT INFORMATION
  Report Type: Spontaneous
  Country: CN (occurrence: CN)
  Receive Date: 20241209
  Receipt Date: 20241209
  Transmission Date: 20250115
  Serious: Yes (Hospitalization, Other)
  Sender: BAXTER
  Company Number: None

PATIENT
  Age: 30 Year
  Sex: Male
  Weight: 45.5 kg

DRUGS (12)
  1. IFOSFAMIDE [Suspect]
     Active Substance: IFOSFAMIDE
     Indication: Neurofibrosarcoma
     Dosage: 3.5 G, ONE TIME IN ONE DAY, DILUTED WITH 1000 ML OF 0.9% SODIUM CHLORIDE
     Route: 041
     Dates: start: 20241113, end: 20241114
  2. IFOSFAMIDE [Suspect]
     Active Substance: IFOSFAMIDE
     Indication: Neurofibromatosis
  3. IFOSFAMIDE [Suspect]
     Active Substance: IFOSFAMIDE
     Indication: Retroperitoneal neoplasm
  4. DOXORUBICIN HYDROCHLORIDE [Suspect]
     Active Substance: DOXORUBICIN HYDROCHLORIDE
     Indication: Neurofibrosarcoma
     Dosage: 87 MG, ONE TIME IN ONE DAY, DILUTED WITH 500 ML OF STERILE WATER FOR INJECTION
     Route: 042
     Dates: start: 20241113, end: 20241113
  5. DOXORUBICIN HYDROCHLORIDE [Suspect]
     Active Substance: DOXORUBICIN HYDROCHLORIDE
     Indication: Neurofibromatosis
  6. DOXORUBICIN HYDROCHLORIDE [Suspect]
     Active Substance: DOXORUBICIN HYDROCHLORIDE
     Indication: Retroperitoneal neoplasm
  7. SODIUM CHLORIDE [Suspect]
     Active Substance: SODIUM CHLORIDE
     Indication: Medication dilution
     Dosage: 1000 ML (0.9%), ONE TIME IN ONE DAY, USED TO DILUTE CYCLOPHOSPHAMIDE 3.5 G
     Route: 041
     Dates: start: 20241113, end: 20241114
  8. STERILE WATER [Suspect]
     Active Substance: WATER
     Indication: Medication dilution
     Dosage: 25 ML, ONE TIME IN ONE DAY, USED TO DILUTE 1.75 G OF MESNA; DOSAGE FORM: INJECTION SOLUTION
     Route: 041
     Dates: start: 20241113, end: 20241114
  9. STERILE WATER [Suspect]
     Active Substance: WATER
     Dosage: 500 ML, ONE TIME IN ONE DAY, USED TO DILUTE 87 MG OF DOXORUBICIN HYDROCHLORIDE; DOSAGE FORM: INJECTI
     Route: 042
     Dates: start: 20241113, end: 20241113
  10. MESNA [Suspect]
     Active Substance: MESNA
     Indication: Neurofibrosarcoma
     Dosage: 1.75 G, ONE TIME IN ONE DAY, DILUTED WITH 25 ML OF STERILE WATER FOR INJECTION
     Route: 041
     Dates: start: 20241113, end: 20241114
  11. MESNA [Suspect]
     Active Substance: MESNA
     Indication: Neurofibromatosis
  12. MESNA [Suspect]
     Active Substance: MESNA
     Indication: Retroperitoneal neoplasm

REACTIONS (6)
  - Myelosuppression [Unknown]
  - Gastrointestinal disorder [Unknown]
  - Nausea [Unknown]
  - Vomiting [Unknown]
  - Hiccups [Not Recovered/Not Resolved]
  - Marasmus [Unknown]

NARRATIVE: CASE EVENT DATE: 20241114
